FAERS Safety Report 13902336 (Version 2)
Quarter: 2017Q4

REPORT INFORMATION
  Report Type: Spontaneous
  Country: DE (occurrence: DE)
  Receive Date: 20170824
  Receipt Date: 20171016
  Transmission Date: 20180320
  Serious: Yes (Other)
  Sender: FDA-Public Use
  Company Number: PHHY2017DE122765

PATIENT
  Sex: Male

DRUGS (2)
  1. COSENTYX [Suspect]
     Active Substance: SECUKINUMAB
     Indication: PSORIASIS
     Dosage: UNK UNK, QMO
     Route: 065
     Dates: start: 20170330
  2. COSENTYX [Suspect]
     Active Substance: SECUKINUMAB
     Dosage: 150 UNK, QMO
     Route: 065
     Dates: start: 20170829

REACTIONS (2)
  - Inappropriate schedule of drug administration [Unknown]
  - Comminuted fracture [Recovering/Resolving]

NARRATIVE: CASE EVENT DATE: 20170330
